FAERS Safety Report 12073494 (Version 1)
Quarter: 2016Q1

REPORT INFORMATION
  Report Type: Other
  Country: US (occurrence: US)
  Receive Date: 20160212
  Receipt Date: 20160212
  Transmission Date: 20160526
  Serious: Yes (Other)
  Sender: FDA-Public Use
  Company Number: US-B. BRAUN MEDICAL INC.-1047741

PATIENT
  Age: 82 Year
  Sex: Female

DRUGS (4)
  1. HEPARIN SODIUM AND DEXTROSE [Suspect]
     Active Substance: HEPARIN SODIUM
     Route: 042
  2. ASPIRIN 81 MG [Concomitant]
     Active Substance: ASPIRIN
     Route: 048
  3. HEPARIN [Suspect]
     Active Substance: HEPARIN SODIUM
     Route: 058
  4. WARFARIN [Suspect]
     Active Substance: WARFARIN

REACTIONS (2)
  - Spinal epidural haematoma [None]
  - Paraesthesia [None]
